FAERS Safety Report 12330453 (Version 1)
Quarter: 2016Q2

REPORT INFORMATION
  Report Type: Spontaneous
  Country: DK (occurrence: DK)
  Receive Date: 20160504
  Receipt Date: 20160504
  Transmission Date: 20160815
  Serious: Yes (Death, Hospitalization, Other)
  Sender: FDA-Public Use
  Company Number: DK-BAXTER-2016BAX022276

PATIENT
  Age: 57 Year
  Sex: Female

DRUGS (2)
  1. SENDOXAN [Suspect]
     Active Substance: CYCLOPHOSPHAMIDE
     Indication: BREAST CANCER
     Route: 065
     Dates: start: 20130415
  2. EPIRUBICIN ACTAVIS [Suspect]
     Active Substance: EPIRUBICIN
     Indication: BREAST CANCER
     Route: 065
     Dates: start: 20130415

REACTIONS (7)
  - Septic shock [Fatal]
  - Abscess [Unknown]
  - Multiple organ dysfunction syndrome [Fatal]
  - Immunodeficiency [Fatal]
  - Condition aggravated [Unknown]
  - Bone marrow failure [Fatal]
  - Stenosis [Unknown]

NARRATIVE: CASE EVENT DATE: 20130609
